FAERS Safety Report 13362966 (Version 1)
Quarter: 2017Q1

REPORT INFORMATION
  Report Type: Spontaneous
  Country: US (occurrence: US)
  Receive Date: 20170323
  Receipt Date: 20170323
  Transmission Date: 20170429
  Serious: No
  Sender: FDA-Public Use
  Company Number: US-TEVA-748444ACC

PATIENT
  Sex: Male

DRUGS (2)
  1. LEVAMIR [Concomitant]
  2. SYNRIBO [Suspect]
     Active Substance: OMACETAXINE MEPESUCCINATE
     Dosage: DOSAGE: 2.75 MG
     Dates: start: 20170126

REACTIONS (1)
  - Rash [Unknown]
